FAERS Safety Report 18613458 (Version 1)
Quarter: 2020Q4

REPORT INFORMATION
  Report Type: Spontaneous
  Country: US (occurrence: US)
  Receive Date: 20201214
  Receipt Date: 20201214
  Transmission Date: 20210114
  Serious: No
  Sender: FDA-Public Use
  Company Number: US-ABBVIE-20K-163-3424008-00

PATIENT
  Sex: Male
  Weight: 90.8 kg

DRUGS (1)
  1. IMBRUVICA [Suspect]
     Active Substance: IBRUTINIB
     Indication: CHRONIC LYMPHOCYTIC LEUKAEMIA
     Dosage: 3 CAPSULES OF THE 140MG FOR A TOTAL DAILY?DOSE OF 420MG ONCE DAILY,
     Route: 048
     Dates: start: 20151122

REACTIONS (2)
  - Anger [Not Recovered/Not Resolved]
  - Agitation [Not Recovered/Not Resolved]
